FAERS Safety Report 21528970 (Version 1)
Quarter: 2022Q4

REPORT INFORMATION
  Report Type: Spontaneous
  Country: US (occurrence: US)
  Receive Date: 20221031
  Receipt Date: 20221031
  Transmission Date: 20230113
  Serious: Yes (Other)
  Sender: FDA-Public Use
  Company Number: US-SA-2022SA444213

PATIENT
  Age: 32 Year
  Sex: Female

DRUGS (2)
  1. DUPIXENT [Suspect]
     Active Substance: DUPILUMAB
     Indication: Asthma
     Dosage: UNK
     Route: 058
  2. DUPIXENT [Suspect]
     Active Substance: DUPILUMAB
     Indication: Rhinitis allergic

REACTIONS (11)
  - Cardiomyopathy [Unknown]
  - Myocardial oedema [Unknown]
  - Acute febrile neutrophilic dermatosis [Unknown]
  - Myopericarditis [Unknown]
  - Rash [Unknown]
  - Hypokinesia [Unknown]
  - Dyspnoea [Unknown]
  - Chest pain [Unknown]
  - Arthralgia [Unknown]
  - Eosinophil count increased [Unknown]
  - Product use in unapproved indication [Unknown]
